FAERS Safety Report 15951796 (Version 1)
Quarter: 2019Q1

REPORT INFORMATION
  Report Type: Spontaneous
  Country: US (occurrence: US)
  Receive Date: 20190211
  Receipt Date: 20190211
  Transmission Date: 20190417
  Serious: No
  Sender: FDA-Public Use
  Company Number: US-JNJFOC-20190134838

PATIENT
  Age: 68 Year
  Sex: Male
  Weight: 70.31 kg

DRUGS (2)
  1. XARELTO [Suspect]
     Active Substance: RIVAROXABAN
     Indication: THROMBOSIS
     Route: 048
     Dates: start: 201809
  2. LORAZEPAM. [Concomitant]
     Active Substance: LORAZEPAM
     Route: 065
     Dates: start: 201810

REACTIONS (3)
  - Epistaxis [Unknown]
  - Neutrophil count decreased [Not Recovered/Not Resolved]
  - Neutrophil percentage decreased [Not Recovered/Not Resolved]

NARRATIVE: CASE EVENT DATE: 201810
